FAERS Safety Report 6847248-4 (Version None)
Quarter: 2010Q3

REPORT INFORMATION
  Report Type: 
  Country: None (occurrence: None)
  Receive Date: 20100716
  Receipt Date: 20100708
  Transmission Date: 20110219
  Serious: Yes (Death, Other)
  Sender: FDA-Public Use
  Company Number: FR-CELGENEUS-056-21880-10070667

PATIENT

DRUGS (1)
  1. REVLIMID [Suspect]
     Route: 048

REACTIONS (13)
  - ACUTE MYELOID LEUKAEMIA [None]
  - ANGIOEDEMA [None]
  - CEREBRAL HAEMORRHAGE [None]
  - DEEP VEIN THROMBOSIS [None]
  - DIARRHOEA [None]
  - MYELODYSPLASTIC SYNDROME TRANSFORMATION [None]
  - NEUTROPENIA [None]
  - PANCYTOPENIA [None]
  - RASH [None]
  - SEPSIS [None]
  - SKIN REACTION [None]
  - THROMBOCYTOPENIA [None]
  - THROMBOSIS [None]
